FAERS Safety Report 6138712-4 (Version None)
Quarter: 2009Q1

REPORT INFORMATION
  Report Type: 
  Country: None (occurrence: None)
  Receive Date: 20090331
  Receipt Date: 20090318
  Transmission Date: 20090719
  Serious: Yes (Hospitalization)
  Sender: FDA-Public Use
  Company Number: US-JNJFOC-20090307044

PATIENT
  Sex: Female

DRUGS (13)
  1. IBUPROFEN [Suspect]
     Indication: DRUG USE FOR UNKNOWN INDICATION
  2. DESVENLAFAXINE SUCCINATE MONOHYDRATE [Suspect]
     Indication: MENOPAUSAL SYMPTOMS
     Route: 048
  3. LYRICA [Suspect]
     Indication: DRUG USE FOR UNKNOWN INDICATION
  4. LEXAPRO [Suspect]
     Indication: DRUG USE FOR UNKNOWN INDICATION
  5. CLONAZEPAM [Suspect]
     Indication: DRUG USE FOR UNKNOWN INDICATION
  6. ABILIFY [Suspect]
     Indication: DRUG USE FOR UNKNOWN INDICATION
  7. FLUTICASONE PROPIONATE [Suspect]
     Indication: DRUG USE FOR UNKNOWN INDICATION
     Route: 055
  8. LORATADINE [Suspect]
     Indication: DRUG USE FOR UNKNOWN INDICATION
  9. VICODIN [Suspect]
     Indication: DRUG USE FOR UNKNOWN INDICATION
     Dosage: 5/500 AS NEEDED
  10. ZESTORETIC [Suspect]
     Indication: DRUG USE FOR UNKNOWN INDICATION
     Dosage: 20/12.5 DAILY
  11. AMBIEN [Suspect]
     Indication: DRUG USE FOR UNKNOWN INDICATION
     Route: 048
  12. VIVELLE [Suspect]
     Indication: DRUG USE FOR UNKNOWN INDICATION
     Route: 062
  13. ROBAXIN [Suspect]
     Indication: DRUG USE FOR UNKNOWN INDICATION

REACTIONS (6)
  - ASTHENIA [None]
  - DYSARTHRIA [None]
  - HEADACHE [None]
  - HYPERTENSION [None]
  - HYPOKALAEMIA [None]
  - MENTAL STATUS CHANGES [None]
